FAERS Safety Report 17247512 (Version 2)
Quarter: 2020Q1

REPORT INFORMATION
  Report Type: Spontaneous
  Country: US (occurrence: US)
  Receive Date: 20200108
  Receipt Date: 20200305
  Transmission Date: 20200409
  Serious: No
  Sender: FDA-Public Use
  Company Number: US-ALKERMES INC.-ALK-2020-000013

PATIENT
  Age: 54 Year
  Sex: Male
  Weight: 72.56 kg

DRUGS (5)
  1. VIVITROL [Suspect]
     Active Substance: NALTREXONE
     Indication: ALCOHOLISM
     Dosage: 380 MG, QMO
     Route: 030
     Dates: start: 201912
  2. SUBOXONE [Concomitant]
     Active Substance: BUPRENORPHINE HYDROCHLORIDE\NALOXONE HYDROCHLORIDE
     Indication: ALCOHOLISM
  3. VIVITROL [Suspect]
     Active Substance: NALTREXONE
     Indication: DRUG DEPENDENCE
  4. OTHER THERAPEUTIC PRODUCTS [Concomitant]
     Active Substance: UNSPECIFIED INGREDIENT
     Indication: HYPERTENSION
     Dosage: UNK
  5. SUBOXONE [Concomitant]
     Active Substance: BUPRENORPHINE HYDROCHLORIDE\NALOXONE HYDROCHLORIDE
     Indication: DRUG DEPENDENCE

REACTIONS (7)
  - Disorientation [Unknown]
  - Anxiety [Unknown]
  - Decreased appetite [Unknown]
  - Nausea [Unknown]
  - Dizziness [Unknown]
  - Pain [Unknown]
  - Weight decreased [Unknown]

NARRATIVE: CASE EVENT DATE: 201912
